FAERS Safety Report 8796813 (Version 3)
Quarter: 2015Q2

REPORT INFORMATION
  Report Type: Report from Study
  Country: US (occurrence: US)
  Receive Date: 20120917
  Receipt Date: 20150622
  Transmission Date: 20150821
  Serious: Yes (Death)
  Sender: FDA-Public Use
  Company Number: US-ROCHE-1127648

PATIENT
  Sex: Female

DRUGS (13)
  1. TAMOXIFEN [Concomitant]
     Active Substance: TAMOXIFEN
  2. AVASTIN [Suspect]
     Active Substance: BEVACIZUMAB
     Indication: BREAST CANCER FEMALE
     Route: 042
     Dates: start: 20050622, end: 20050929
  3. ZOMETA [Concomitant]
     Active Substance: ZOLEDRONIC ACID
     Route: 065
  4. DOXIL [Concomitant]
     Active Substance: DOXORUBICIN HYDROCHLORIDE
  5. AUGMENTIN [Concomitant]
     Active Substance: AMOXICILLIN\CLAVULANATE POTASSIUM
  6. NAVELBINE [Concomitant]
     Active Substance: VINORELBINE TARTRATE
  7. FEMARA [Concomitant]
     Active Substance: LETROZOLE
  8. AVASTIN [Suspect]
     Active Substance: BEVACIZUMAB
     Indication: BONE CANCER
  9. MECLIZINE [Concomitant]
     Active Substance: MECLIZINE\MECLIZINE HYDROCHLORIDE
  10. ZYRTEC [Concomitant]
     Active Substance: CETIRIZINE HYDROCHLORIDE
  11. ABRAXANE [Concomitant]
     Active Substance: PACLITAXEL
     Route: 065
  12. HEPARIN [Concomitant]
     Active Substance: HEPARIN SODIUM
  13. NASONEX [Concomitant]
     Active Substance: MOMETASONE FUROATE

REACTIONS (10)
  - Death [Fatal]
  - Off label use [Unknown]
  - Ascites [Unknown]
  - Oedema [Unknown]
  - Eye disorder [Unknown]
  - Dysthymic disorder [Unknown]
  - Ataxia [Unknown]
  - Hepatitis [Unknown]
  - Fatigue [Unknown]
  - VIIth nerve paralysis [Unknown]
